FAERS Safety Report 4559424-4 (Version None)
Quarter: 2005Q1

REPORT INFORMATION
  Report Type: 
  Country: None (occurrence: None)
  Receive Date: 20050120
  Receipt Date: 20050120
  Transmission Date: 20050727
  Serious: Yes (Hospitalization)
  Sender: FDA-Public Use
  Company Number: None

PATIENT
  Sex: Male

DRUGS (10)
  1. WARFARIN SODIUM [Suspect]
     Indication: ATRIAL FLUTTER
     Dosage: 5 MG QD
  2. AMIODARONE HCL [Concomitant]
  3. GABAPENTIN [Concomitant]
  4. GLIPIZIDE [Concomitant]
  5. AMLODIPINE [Concomitant]
  6. INSULIN [Concomitant]
  7. KCL TAB [Concomitant]
  8. CARVEDILOL [Concomitant]
  9. LASIX [Concomitant]
  10. VALSARTAN [Concomitant]

REACTIONS (4)
  - ASTHENIA [None]
  - FATIGUE [None]
  - INTERNATIONAL NORMALISED RATIO INCREASED [None]
  - RECTAL HAEMORRHAGE [None]
